FAERS Safety Report 6667070-1 (Version None)
Quarter: 2010Q2

REPORT INFORMATION
  Report Type: 
  Country: None (occurrence: None)
  Receive Date: 20100402
  Receipt Date: 20100402
  Transmission Date: 20101027
  Serious: Yes (Hospitalization)
  Sender: FDA-Public Use
  Company Number: None

PATIENT
  Sex: Female
  Weight: 71.8 kg

DRUGS (10)
  1. VINORELBINE TARTRATE [Suspect]
     Indication: BREAST CANCER METASTATIC
     Dosage: 35.2 MG IV
     Route: 042
     Dates: start: 20100205, end: 20100331
  2. SORAFENIB 200 MG [Suspect]
     Indication: BREAST CANCER METASTATIC
     Dosage: 200MG PO BID
     Route: 048
     Dates: start: 20100205, end: 20100331
  3. FLEXERIL [Concomitant]
  4. LUNESTA [Concomitant]
  5. OXYCODONE [Concomitant]
  6. SENOKOT [Concomitant]
  7. SODIUM PHOSPHORUS [Concomitant]
  8. TYLENOL-500 [Concomitant]
  9. VICODING [Concomitant]
  10. XANAX [Concomitant]

REACTIONS (4)
  - CHILLS [None]
  - CONSTIPATION [None]
  - PYREXIA [None]
  - SEPSIS [None]
